FAERS Safety Report 16531909 (Version 1)
Quarter: 2019Q3

REPORT INFORMATION
  Report Type: Spontaneous
  Country: US (occurrence: US)
  Receive Date: 20190705
  Receipt Date: 20190705
  Transmission Date: 20191004
  Serious: Yes (Other)
  Sender: FDA-Public Use
  Company Number: US-NALPROPION PHARMACEUTICALS INC.-2019-007719

PATIENT
  Age: 66 Year
  Sex: Female
  Weight: 109.75 kg

DRUGS (9)
  1. ASPIRIN                            /00002701/ [Concomitant]
     Active Substance: ASPIRIN
     Indication: THROMBOSIS PROPHYLAXIS
     Dosage: STARTED MANY YEARS AGO
     Route: 048
  2. ATENOLOL. [Concomitant]
     Active Substance: ATENOLOL
     Indication: HYPERTENSION
     Dosage: STARTED MANY YEARS AGO
     Route: 048
  3. LEXAPRO [Concomitant]
     Active Substance: ESCITALOPRAM OXALATE
     Indication: DEPRESSION
     Dosage: STARTED MANY YEARS AGO
     Route: 048
  4. DETROL [Concomitant]
     Active Substance: TOLTERODINE TARTRATE
     Indication: HYPERTONIC BLADDER
     Dosage: STARTED MANY YEARS AGO
     Route: 048
  5. CYMBALTA [Concomitant]
     Active Substance: DULOXETINE HYDROCHLORIDE
     Indication: DEPRESSION
     Dosage: STARTED MANY YEARS AGO
     Route: 048
  6. ATORVASTATIN [Concomitant]
     Active Substance: ATORVASTATIN
     Indication: BLOOD CHOLESTEROL INCREASED
     Dosage: STARTED MANY YEARS AGO
     Route: 048
  7. CONTRAVE [Suspect]
     Active Substance: BUPROPION HYDROCHLORIDE\NALTREXONE HYDROCHLORIDE
     Indication: WEIGHT CONTROL
     Dosage: 1 TAB, QD
     Route: 048
     Dates: start: 201806, end: 201902
  8. OMEPRAZOLE. [Concomitant]
     Active Substance: OMEPRAZOLE
     Indication: GASTROOESOPHAGEAL REFLUX DISEASE
     Dosage: STARTED MANY YEARS AGO
     Route: 048
  9. HYDROCHLOROTHIAZIDE W/LISINOPRIL [Concomitant]
     Active Substance: HYDROCHLOROTHIAZIDE\LISINOPRIL
     Indication: HYPERTENSION
     Dosage: STARTED MANY YEARS AGO
     Route: 048

REACTIONS (3)
  - Blood creatinine increased [Not Recovered/Not Resolved]
  - Underdose [Recovered/Resolved]
  - Chronic kidney disease [Not Recovered/Not Resolved]

NARRATIVE: CASE EVENT DATE: 20190618
